FAERS Safety Report 13078515 (Version 2)
Quarter: 2017Q1

REPORT INFORMATION
  Report Type: Report from Study
  Country: IT (occurrence: IT)
  Receive Date: 20170102
  Receipt Date: 20170103
  Transmission Date: 20170428
  Serious: Yes (Hospitalization)
  Sender: FDA-Public Use
  Company Number: IT-TEVA-606658ISR

PATIENT
  Age: 67 Year
  Sex: Male

DRUGS (9)
  1. LONQUEX [Suspect]
     Active Substance: LIPEGFILGRASTIM
     Dosage: 1 DOSAGE FORMS DAILY;
     Dates: start: 20150912, end: 20150912
  2. DOXORUBICINA PFIZER [Suspect]
     Active Substance: DOXORUBICIN HYDROCHLORIDE
     Indication: LYMPHOMA
     Dosage: 90 MILLIGRAM DAILY;
     Route: 042
     Dates: start: 20150710
  3. VINCRISTINA TEVA [Suspect]
     Active Substance: VINCRISTINE
     Indication: LYMPHOMA
     Dosage: 2 MILLIGRAM DAILY;
     Route: 042
     Dates: start: 20150710
  4. CICLOFOSFAMIDE [Suspect]
     Active Substance: CYCLOPHOSPHAMIDE
     Indication: LYMPHOMA
     Dosage: 1350 MILLIGRAM DAILY;
     Route: 042
     Dates: start: 20150710
  5. LONQUEX [Suspect]
     Active Substance: LIPEGFILGRASTIM
     Dosage: 1 DOSAGE FORMS DAILY;
     Dates: start: 20150823, end: 20150823
  6. METILPREDNISOLONE [Suspect]
     Active Substance: METHYLPREDNISOLONE
     Indication: LYMPHOMA
     Dosage: 80 MILLIGRAM DAILY;
     Route: 042
     Dates: start: 20150710
  7. LONQUEX [Suspect]
     Active Substance: LIPEGFILGRASTIM
     Dosage: 1 DOSAGE FORMS DAILY;
     Dates: start: 20151007, end: 20151007
  8. LONQUEX [Suspect]
     Active Substance: LIPEGFILGRASTIM
     Dosage: 6 MILLIGRAM DAILY;
     Route: 058
     Dates: start: 20151011, end: 20151011
  9. LONQUEX [Suspect]
     Active Substance: LIPEGFILGRASTIM
     Indication: PROPHYLAXIS
     Dosage: 1 DOSAGE FORMS DAILY;
     Dates: start: 20150731, end: 20150731

REACTIONS (1)
  - Febrile neutropenia [Recovered/Resolved]

NARRATIVE: CASE EVENT DATE: 20151022
